FAERS Safety Report 9300512 (Version 1)
Quarter: 2013Q2

REPORT INFORMATION
  Report Type: Spontaneous
  Country: FR (occurrence: FR)
  Receive Date: 20130521
  Receipt Date: 20130521
  Transmission Date: 20140414
  Serious: Yes (Death, Hospitalization, Other)
  Sender: FDA-Public Use
  Company Number: FR-BRISTOL-MYERS SQUIBB COMPANY-18903971

PATIENT
  Age: 91 Year
  Sex: Male

DRUGS (4)
  1. COUMADINE [Suspect]
     Indication: ATRIAL FIBRILLATION
     Dosage: SCORED TABLET
     Route: 048
     Dates: end: 20121220
  2. KARDEGIC [Suspect]
     Indication: ATRIAL FIBRILLATION
     Dosage: SCORED TABLET
     Route: 048
     Dates: end: 20121220
  3. FUROSEMIDE [Concomitant]
     Dosage: 1DF:40 UNIT NOS
  4. CARDENSIEL [Concomitant]

REACTIONS (2)
  - Cerebral haemorrhage [Fatal]
  - Head injury [Unknown]
